FAERS Safety Report 9943041 (Version 1)
Quarter: 2014Q1

REPORT INFORMATION
  Report Type: Report from Study
  Country: GB (occurrence: GB)
  Receive Date: 20140303
  Receipt Date: 20140303
  Transmission Date: 20141002
  Serious: Yes (Other)
  Sender: FDA-Public Use
  Company Number: GB-BAXTER-2014BAX010005

PATIENT
  Age: 65 Year
  Sex: Male

DRUGS (3)
  1. FEIBA IMMUNO FACTOR VIII INHIBITOR BYPASSING FRACTION HUMAN VAPOUR HEA [Suspect]
     Indication: INGUINAL HERNIA REPAIR
     Dosage: 50-100 U/KG
     Route: 065
  2. FEIBA IMMUNO FACTOR VIII INHIBITOR BYPASSING FRACTION HUMAN VAPOUR HEA [Suspect]
     Indication: HAEMOSTASIS
     Dosage: 158 U/KG 6 AND 12 H INTERVALS
     Route: 065
  3. FEIBA IMMUNO FACTOR VIII INHIBITOR BYPASSING FRACTION HUMAN VAPOUR HEA [Suspect]
     Dosage: TOTAL DOSE OF 82,000 U WAS 14 OVER 7 DAYS
     Route: 065

REACTIONS (1)
  - Cerebral infarction [Recovered/Resolved]
